FAERS Safety Report 6522900-9 (Version None)
Quarter: 2009Q4

REPORT INFORMATION
  Report Type: 
  Country: None (occurrence: None)
  Receive Date: 20091222
  Receipt Date: 20091214
  Transmission Date: 20100525
  Serious: Yes (Hospitalization)
  Sender: FDA-Public Use
  Company Number: 1000010919

PATIENT
  Age: 24 Year
  Sex: Female

DRUGS (4)
  1. ESCITALOPRAM [Suspect]
     Indication: DEPRESSION
     Dosage: 10 MG (10 MG 1 IN 1 D)
     Dates: start: 20091117, end: 20091126
  2. ESCITALOPRAM OXALATE [Suspect]
     Indication: DEPRESSION
     Dosage: 20 MG (20 MG, 1 IN 1 D); 15 MG (15 MG, 1 IN 1 D)
     Dates: start: 20091127, end: 20091203
  3. ESCITALOPRAM OXALATE [Suspect]
     Indication: DEPRESSION
     Dosage: 20 MG (20 MG, 1 IN 1 D); 15 MG (15 MG, 1 IN 1 D)
     Dates: start: 20091204
  4. TEMESTA [Concomitant]

REACTIONS (3)
  - AGITATION [None]
  - MUSCULOSKELETAL DISORDER [None]
  - SUICIDAL IDEATION [None]
